FAERS Safety Report 19774735 (Version 1)
Quarter: 2021Q3

REPORT INFORMATION
  Report Type: Spontaneous
  Country: NL (occurrence: NL)
  Receive Date: 20210901
  Receipt Date: 20210901
  Transmission Date: 20211014
  Serious: Yes (Other)
  Sender: FDA-Public Use
  Company Number: NL-MYLANLABS-2021M1057024

PATIENT
  Age: 45 Year
  Sex: Male
  Weight: 78 kg

DRUGS (3)
  1. PFIZER?BIONTECH COVID?19 VACCINE [Suspect]
     Active Substance: TOZINAMERAN
     Indication: PRODUCT USED FOR UNKNOWN INDICATION
     Dosage: 1 DOSAGE FORM
     Dates: start: 20210612
  2. VOLTAREN [Suspect]
     Active Substance: DICLOFENAC SODIUM
     Indication: GOUT
     Dosage: TWICE DAILY, NO LONGER ON THE DAY OF CORONAVACCINATION
     Dates: start: 20210606, end: 20210612
  3. IBUPROFEN. [Suspect]
     Active Substance: IBUPROFEN
     Indication: GOUT
     Dosage: THREE TIMES DAILY. ON THE DAY OF THE CORONAVACCINATION ONLY 1 X FOR THE VACCINATION
     Dates: start: 20210606, end: 20210612

REACTIONS (2)
  - Eye haematoma [Not Recovered/Not Resolved]
  - Ocular discomfort [Not Recovered/Not Resolved]

NARRATIVE: CASE EVENT DATE: 20210612
